FAERS Safety Report 11759573 (Version 1)
Quarter: 2015Q4

REPORT INFORMATION
  Report Type: Spontaneous
  Country: US (occurrence: US)
  Receive Date: 20151120
  Receipt Date: 20151120
  Transmission Date: 20160304
  Serious: No
  Sender: FDA-Public Use
  Company Number: US-JNJFOC-20151009966

PATIENT
  Age: 66 Year
  Sex: Male
  Weight: 98.88 kg

DRUGS (7)
  1. VITAMIN D [Concomitant]
     Active Substance: CHOLECALCIFEROL
     Indication: ROUTINE HEALTH MAINTENANCE
     Route: 065
  2. ATORVASTATIN [Concomitant]
     Active Substance: ATORVASTATIN
     Indication: BLOOD CHOLESTEROL
     Route: 065
  3. MENS ROGAINE EXTRA STRENGTH [Suspect]
     Active Substance: MINOXIDIL
     Indication: ALOPECIA
     Dosage: LESS THAN HALF CAPFUL
     Route: 061
     Dates: start: 20151010
  4. IRBESARTAN. [Concomitant]
     Active Substance: IRBESARTAN
     Indication: HYPERTENSION
     Route: 065
  5. MENS ROGAINE EXTRA STRENGTH [Suspect]
     Active Substance: MINOXIDIL
     Indication: ALOPECIA
     Route: 061
     Dates: start: 20151011, end: 20151011
  6. METFORMIN [Concomitant]
     Active Substance: METFORMIN HYDROCHLORIDE
     Indication: DIABETES MELLITUS
     Route: 065
  7. LUMIGAN [Concomitant]
     Active Substance: BIMATOPROST
     Indication: GLAUCOMA
     Dosage: AT NIGHT
     Route: 065

REACTIONS (10)
  - Skin haemorrhage [Not Recovered/Not Resolved]
  - Pruritus [Not Recovered/Not Resolved]
  - Skin warm [Not Recovered/Not Resolved]
  - Inappropriate schedule of drug administration [Not Recovered/Not Resolved]
  - Underdose [Unknown]
  - Rash [Not Recovered/Not Resolved]
  - Acne [Not Recovered/Not Resolved]
  - Blister [Not Recovered/Not Resolved]
  - Discomfort [Not Recovered/Not Resolved]
  - Contraindication to medical treatment [Unknown]

NARRATIVE: CASE EVENT DATE: 20151010
